FAERS Safety Report 8787811 (Version 2)
Quarter: 2015Q1

REPORT INFORMATION
  Report Type: Report from Study
  Country: US (occurrence: US)
  Receive Date: 20120914
  Receipt Date: 20150326
  Transmission Date: 20150721
  Serious: Yes (Death, Hospitalization)
  Sender: FDA-Public Use
  Company Number: US-ROCHE-1123144

PATIENT
  Age: 78 Year
  Sex: Female

DRUGS (20)
  1. AVASTIN [Suspect]
     Active Substance: BEVACIZUMAB
     Route: 042
     Dates: start: 20060314
  2. DEXAMETHASONE. [Concomitant]
     Active Substance: DEXAMETHASONE
     Route: 065
  3. EMEND [Concomitant]
     Active Substance: APREPITANT
  4. ETHYOL [Concomitant]
     Active Substance: AMIFOSTINE
     Route: 058
  5. MS CONTIN [Concomitant]
     Active Substance: MORPHINE SULFATE
     Route: 065
  6. ALOXI [Concomitant]
     Active Substance: PALONOSETRON HYDROCHLORIDE
     Route: 065
  7. ARANESP [Concomitant]
     Active Substance: DARBEPOETIN ALFA
     Route: 065
  8. VICODIN [Concomitant]
     Active Substance: ACETAMINOPHEN\HYDROCODONE BITARTRATE
  9. AVASTIN [Suspect]
     Active Substance: BEVACIZUMAB
     Route: 042
     Dates: start: 20060119
  10. AVASTIN [Suspect]
     Active Substance: BEVACIZUMAB
     Route: 042
     Dates: start: 20060221
  11. MARINOL (UNITED STATES) [Concomitant]
  12. OXYCONTIN [Concomitant]
     Active Substance: OXYCODONE HYDROCHLORIDE
  13. MS CONTIN [Concomitant]
     Active Substance: MORPHINE SULFATE
     Route: 065
  14. ROXANOL [Concomitant]
     Active Substance: MORPHINE SULFATE
  15. CARBOPLATIN. [Concomitant]
     Active Substance: CARBOPLATIN
     Route: 042
  16. TAXOL [Concomitant]
     Active Substance: PACLITAXEL
     Route: 042
  17. AVASTIN [Suspect]
     Active Substance: BEVACIZUMAB
     Indication: BREAST CANCER FEMALE
     Route: 042
     Dates: start: 20060530
  18. AVASTIN [Suspect]
     Active Substance: BEVACIZUMAB
     Route: 042
     Dates: start: 20060626
  19. AVASTIN [Suspect]
     Active Substance: BEVACIZUMAB
     Route: 042
     Dates: start: 20060726
  20. TAXOL [Concomitant]
     Active Substance: PACLITAXEL
     Route: 042

REACTIONS (20)
  - Constipation [Unknown]
  - Fall [Unknown]
  - Pyrexia [Unknown]
  - Decreased appetite [Unknown]
  - Asthenia [Unknown]
  - Pallor [Unknown]
  - Disease progression [Unknown]
  - Oropharyngeal pain [Unknown]
  - Thrombocytopenia [Unknown]
  - Peripheral swelling [Unknown]
  - Bone pain [Unknown]
  - Hypokinesia [Unknown]
  - Cough [Unknown]
  - Abdominal pain [Unknown]
  - Discomfort [Unknown]
  - Off label use [Unknown]
  - Death [Fatal]
  - Nausea [Unknown]
  - Rhinorrhoea [Unknown]
  - Chills [Unknown]

NARRATIVE: CASE EVENT DATE: 200611
